FAERS Safety Report 9514604 (Version 1)
Quarter: 2013Q1

REPORT INFORMATION
  Report Type: Spontaneous
  Country: US (occurrence: None)
  Receive Date: 20130305
  Receipt Date: 20130305
  Transmission Date: 20140127
  Serious: Yes (Other)
  Sender: FDA-Public Use
  Company Number: 163-21880-12112221

PATIENT
  Age: 71 Year
  Sex: Female

DRUGS (16)
  1. REVLIMID [Suspect]
     Indication: PLASMA CELL MYELOMA
     Route: 048
     Dates: start: 20061229
  2. LEVETIRACETAM (LEVETIRACETAM) [Concomitant]
  3. TAMOXIFEN [Concomitant]
  4. CEPHALEXIN (CEFALEXIN) [Concomitant]
  5. CITALOPRAM (CITALOPRAM) [Concomitant]
  6. LEVOFLOXAIN (LEVOFLOXACIN) [Concomitant]
  7. AYCLOVIR (ACICLOVIR) [Concomitant]
  8. AMITRIPTYLINE (AMITRIPTYLINE) [Concomitant]
  9. TRAZODONE (TRAZODONE) [Concomitant]
  10. VICODINE (VICODINE) [Concomitant]
  11. BENZONATATE (BENZONATATE) [Concomitant]
  12. ENOXAPARIN (ENOXAPARIN) [Concomitant]
  13. VITAMIN B12 (CYANOCOBALAMIN) [Concomitant]
  14. ASPIRIN [Concomitant]
  15. EPIPEN (EPINEPHRIN ) [Concomitant]
  16. OXYCODONE (OXYCODONE) [Concomitant]

REACTIONS (1)
  - Diarrhoea [None]
